FAERS Safety Report 7876276-5 (Version None)
Quarter: 2011Q4

REPORT INFORMATION
  Report Type: 
  Country: None (occurrence: None)
  Receive Date: 20111031
  Receipt Date: 20111028
  Transmission Date: 20120403
  Serious: Yes (Disabling)
  Sender: FDA-Public Use
  Company Number: US-MERCK-1110USA04475

PATIENT
  Age: 58 Year
  Sex: Female

DRUGS (5)
  1. FOSAMAX [Suspect]
     Indication: OSTEOPENIA
     Route: 048
     Dates: start: 19990101, end: 20080101
  2. FOSAMAX [Suspect]
     Indication: OSTEOPOROSIS PROPHYLAXIS
     Route: 048
     Dates: start: 19990101, end: 20080101
  3. BONIVA [Suspect]
     Indication: OSTEOPOROSIS PROPHYLAXIS
     Route: 065
     Dates: start: 20051026, end: 20100101
  4. BONIVA [Suspect]
     Indication: OSTEOPENIA
     Route: 065
     Dates: start: 20051026, end: 20100101
  5. ACTONEL [Suspect]
     Route: 065

REACTIONS (2)
  - MULTIPLE FRACTURES [None]
  - LOW TURNOVER OSTEOPATHY [None]
